FAERS Safety Report 5326568-9 (Version None)
Quarter: 2007Q2

REPORT INFORMATION
  Report Type: 
  Country: None (occurrence: None)
  Receive Date: 20070516
  Receipt Date: 20070510
  Transmission Date: 20071010
  Serious: Yes (Other)
  Sender: FDA-Public Use
  Company Number: PHEH2007US05449

PATIENT
  Age: 48 Year
  Sex: Female
  Weight: 45.351 kg

DRUGS (1)
  1. ZELNORM [Suspect]
     Dosage: 2-6 MGS PRN
     Dates: start: 20060501, end: 20061101

REACTIONS (7)
  - CHEST DISCOMFORT [None]
  - CONDITION AGGRAVATED [None]
  - MIGRAINE [None]
  - MITRAL VALVE PROLAPSE [None]
  - NAUSEA [None]
  - PALPITATIONS [None]
  - VOMITING [None]
